FAERS Safety Report 5968565-6 (Version None)
Quarter: 2008Q4

REPORT INFORMATION
  Report Type: 
  Country: None (occurrence: None)
  Receive Date: 20081121
  Receipt Date: 20081121
  Transmission Date: 20090506
  Serious: Yes (Hospitalization)
  Sender: FDA-Public Use
  Company Number: None

PATIENT
  Age: 9 Year
  Sex: Female
  Weight: 31 kg

DRUGS (1)
  1. PEGASPARGASE 750 UNITS/ML ENZON [Suspect]
     Indication: ACUTE LYMPHOCYTIC LEUKAEMIA
     Dosage: 2800 UNITS - 2500 UNITS/M2 ONCE IM
     Route: 030
     Dates: start: 20081111, end: 20081111

REACTIONS (1)
  - TUMOUR LYSIS SYNDROME [None]
